FAERS Safety Report 8395445-1 (Version None)
Quarter: 2012Q2

REPORT INFORMATION
  Report Type: 
  Country: None (occurrence: None)
  Receive Date: 20120530
  Receipt Date: 20120522
  Transmission Date: 20120825
  Serious: Yes (Hospitalization)
  Sender: FDA-Public Use
  Company Number: DE-UCBSA-019494

PATIENT
  Age: 60 Year
  Sex: Female

DRUGS (15)
  1. PREDNISOLONE [Concomitant]
     Indication: ARTHRALGIA
     Dosage: IN THE MORNING
     Route: 048
  2. PREDNISOLONE [Concomitant]
     Dates: start: 20110125, end: 20110101
  3. PANTOPRAZOLE 2 [Concomitant]
     Route: 048
  4. OMEPRAZOLE [Concomitant]
     Dosage: IN THE MORNING
     Route: 048
     Dates: start: 20100910
  5. PREDNISOLONE [Concomitant]
     Indication: RHEUMATOID ARTHRITIS
     Dosage: IN THE MORNING
     Route: 048
  6. PREDNISOLONE [Concomitant]
     Dates: start: 20110824, end: 20110924
  7. PREDNISOLONE [Concomitant]
     Dates: start: 20111024, end: 20111124
  8. LEVOTHYROXINE SODIUM [Concomitant]
     Dosage: IN THE MORNING
     Route: 048
  9. HYDROXYCHLOROQUINE SULFATE [Concomitant]
     Route: 048
     Dates: start: 20060101
  10. PREDNISOLONE [Concomitant]
     Dates: start: 20110924, end: 20111024
  11. PREDNISOLONE [Concomitant]
     Dates: start: 20111024, end: 20111124
  12. CIMZIA [Suspect]
     Indication: RHEUMATOID ARTHRITIS
     Route: 058
     Dates: start: 20100318
  13. PREDNISOLONE [Concomitant]
     Dates: start: 20110125, end: 20110101
  14. PREDNISOLONE [Concomitant]
     Dates: start: 20110924, end: 20111024
  15. PREDNISOLONE [Concomitant]
     Dates: start: 20110824, end: 20110924

REACTIONS (2)
  - GASTROENTERITIS [None]
  - ANAEMIA [None]
